FAERS Safety Report 7086728-6 (Version None)
Quarter: 2010Q4

REPORT INFORMATION
  Report Type: 
  Country: None (occurrence: None)
  Receive Date: 20101105
  Receipt Date: 20101025
  Transmission Date: 20110411
  Serious: Yes (Other)
  Sender: FDA-Public Use
  Company Number: US-ELI_LILLY_AND_COMPANY-US201010005881

PATIENT
  Age: 45 Year
  Sex: Male

DRUGS (3)
  1. BYETTA [Suspect]
     Indication: TYPE 2 DIABETES MELLITUS
  2. METFORMIN HCL [Concomitant]
  3. INSULIN [Concomitant]
     Indication: TYPE 2 DIABETES MELLITUS

REACTIONS (3)
  - HYPOGLYCAEMIA [None]
  - HYPOGLYCAEMIC UNCONSCIOUSNESS [None]
  - OFF LABEL USE [None]
